FAERS Safety Report 14221611 (Version 7)
Quarter: 2018Q1

REPORT INFORMATION
  Report Type: Report from Study
  Country: US (occurrence: US)
  Receive Date: 20171124
  Receipt Date: 20180320
  Transmission Date: 20180508
  Serious: Yes (Hospitalization, Other)
  Sender: FDA-Public Use
  Company Number: US-ACTELION-A-NJ2017-162913

PATIENT
  Age: 81 Year
  Sex: Female
  Weight: 62.59 kg

DRUGS (11)
  1. OFEV [Concomitant]
     Active Substance: NINTEDANIB
  2. COUMADIN [Concomitant]
     Active Substance: WARFARIN SODIUM
     Dosage: TAKE AS DIRECTED
     Dates: start: 1998
  3. ADCIRCA [Concomitant]
     Active Substance: TADALAFIL
     Dosage: 20 MG, BID
     Dates: start: 2010
  4. WARFARIN [Concomitant]
     Active Substance: WARFARIN
     Dosage: 5 MG, QD
     Dates: start: 2001
  5. DIGOXIN. [Concomitant]
     Active Substance: DIGOXIN
     Dosage: 0.125 MG, QD
     Dates: start: 1996
  6. NORVASC [Concomitant]
     Active Substance: AMLODIPINE BESYLATE
     Dosage: 10 MG, QD
     Dates: start: 2010
  7. AMLODIPINE [Concomitant]
     Active Substance: AMLODIPINE BESYLATE
  8. TRACLEER [Suspect]
     Active Substance: BOSENTAN
     Indication: PULMONARY HYPERTENSION
     Dosage: 125 MG, BID
     Route: 048
     Dates: start: 2007
  9. TORSEMIDE. [Concomitant]
     Active Substance: TORSEMIDE
     Dosage: 100 MG, AM + 50 MG IN PM
     Dates: start: 2010
  10. TORSEMIDE. [Concomitant]
     Active Substance: TORSEMIDE
     Dosage: 50 MG, QPM
  11. QUINAPRIL. [Concomitant]
     Active Substance: QUINAPRIL
     Dosage: 20 MG, QD
     Dates: start: 2006

REACTIONS (32)
  - Hypotension [Recovering/Resolving]
  - Memory impairment [Unknown]
  - Malaise [Unknown]
  - Ear disorder [Unknown]
  - Sarcoma [Not Recovered/Not Resolved]
  - Vertigo [Recovering/Resolving]
  - Weight decreased [Unknown]
  - Feeling cold [Unknown]
  - Dementia [Recovering/Resolving]
  - Haemoglobin decreased [Recovering/Resolving]
  - Heart valve incompetence [Unknown]
  - Dizziness [Recovering/Resolving]
  - Nausea [Unknown]
  - Ear infection [Unknown]
  - Middle ear effusion [Recovering/Resolving]
  - Urinary tract infection [Unknown]
  - Chronic kidney disease [Unknown]
  - Meniere^s disease [Recovering/Resolving]
  - Fatigue [Recovering/Resolving]
  - Oedema peripheral [Recovering/Resolving]
  - Haematocrit decreased [Recovering/Resolving]
  - Heart rate decreased [Recovering/Resolving]
  - Brain oedema [Recovering/Resolving]
  - Hepatic steatosis [Not Recovered/Not Resolved]
  - Abdominal pain [Unknown]
  - Mood swings [Recovering/Resolving]
  - Headache [Recovering/Resolving]
  - Deafness [Recovering/Resolving]
  - Asthenia [Recovering/Resolving]
  - Urine odour abnormal [Recovering/Resolving]
  - Anaemia [Recovering/Resolving]
  - Red blood cell count decreased [Recovering/Resolving]

NARRATIVE: CASE EVENT DATE: 20140922
